FAERS Safety Report 21376213 (Version 1)
Quarter: 2022Q3

REPORT INFORMATION
  Report Type: Other
  Country: IT (occurrence: None)
  Receive Date: 20220926
  Receipt Date: 20220926
  Transmission Date: 20221027
  Serious: Yes (Hospitalization, Other)
  Sender: FDA-Public Use
  Company Number: IT-USAntibiotics-000079

PATIENT
  Age: 35 Year
  Sex: Male

DRUGS (2)
  1. AMOXICILLIN AND CLAVULANATE POTASSIUM [Suspect]
     Active Substance: AMOXICILLIN\CLAVULANATE POTASSIUM
     Indication: Product used for unknown indication
     Dosage: 1 G TID PO
     Route: 048
  2. CEFTRIAXONE [Suspect]
     Active Substance: CEFTRIAXONE
     Indication: Product used for unknown indication
     Dosage: 1 G IM ONCE PER DAY
     Route: 030

REACTIONS (4)
  - Stevens-Johnson syndrome [Recovered/Resolved]
  - Acute respiratory failure [Recovered/Resolved]
  - Photophobia [Recovered/Resolved]
  - Drug ineffective [Recovered/Resolved]
